FAERS Safety Report 20125463 (Version 1)
Quarter: 2021Q4

REPORT INFORMATION
  Report Type: Spontaneous
  Country: MX (occurrence: MX)
  Receive Date: 20211129
  Receipt Date: 20211129
  Transmission Date: 20220303
  Serious: Yes (Death, Other)
  Sender: FDA-Public Use
  Company Number: MX-SA-2021SA392145

PATIENT
  Age: 44 Year
  Sex: Male

DRUGS (12)
  1. FLUDARABINE PHOSPHATE [Suspect]
     Active Substance: FLUDARABINE PHOSPHATE
     Indication: Bone marrow conditioning regimen
     Dosage: UNK
  2. CYCLOPHOSPHAMIDE [Suspect]
     Active Substance: CYCLOPHOSPHAMIDE
     Indication: Bone marrow conditioning regimen
     Dosage: UNK
  3. ANTI-THYMOCYTE GLOBULIN (RABBIT) NOS [Suspect]
     Active Substance: LAPINE T-LYMPHOCYTE IMMUNE GLOBULIN
     Indication: Bone marrow conditioning regimen
     Dosage: UNK
  4. DANAZOL [Suspect]
     Active Substance: DANAZOL
     Indication: Aplastic anaemia
     Dosage: UNK
  5. CYCLOSPORINE [Concomitant]
     Active Substance: CYCLOSPORINE
     Indication: Aplastic anaemia
     Dosage: UNK
  6. CYCLOSPORINE [Concomitant]
     Active Substance: CYCLOSPORINE
     Dosage: GRADUALLY REDUCED UNTIL DISCONTINUATION
  7. PREDNISONE [Concomitant]
     Active Substance: PREDNISONE
     Indication: Post transplant lymphoproliferative disorder
  8. HUMAN RED BLOOD CELL [Concomitant]
     Active Substance: HUMAN RED BLOOD CELL
     Indication: Aplastic anaemia
     Dosage: 13 DF
  9. HUMAN RED BLOOD CELL [Concomitant]
     Active Substance: HUMAN RED BLOOD CELL
     Dosage: 1 UNK
  10. PLATELETS [Concomitant]
     Active Substance: HUMAN PLATELET, ALLOGENIC
     Indication: Aplastic anaemia
     Dosage: 7 DF
  11. PLATELETS [Concomitant]
     Active Substance: HUMAN PLATELET, ALLOGENIC
     Dosage: 7 DF
  12. PRAZOSIN [Concomitant]
     Active Substance: PRAZOSIN
     Indication: Hypertension

REACTIONS (9)
  - Hypovolaemic shock [Fatal]
  - Post transplant lymphoproliferative disorder [Fatal]
  - Lymphadenopathy [Fatal]
  - Swelling face [Fatal]
  - Cytomegalovirus infection reactivation [Fatal]
  - Gastroenteritis cryptosporidial [Fatal]
  - Gastrointestinal haemorrhage [Fatal]
  - Pseudomonas infection [Fatal]
  - Sinusitis [Fatal]
